FAERS Safety Report 13343856 (Version 1)
Quarter: 2017Q1

REPORT INFORMATION
  Report Type: Spontaneous
  Country: US (occurrence: US)
  Receive Date: 20170316
  Receipt Date: 20170316
  Transmission Date: 20170428
  Serious: Yes (Other)
  Sender: FDA-Public Use
  Company Number: US-PFIZER INC-2017108701

PATIENT
  Age: 29 Year
  Sex: Male
  Weight: 80.54 kg

DRUGS (27)
  1. REMICADE [Suspect]
     Active Substance: INFLIXIMAB
     Indication: CROHN^S DISEASE
     Dosage: 800 MG, CYCLIC (EVERY 6 WEEKS)
     Route: 042
     Dates: start: 201108
  2. VITAMIN B12 [Concomitant]
     Active Substance: CYANOCOBALAMIN
     Dosage: 1 ML, UNK (ONCE A MONTH)
     Route: 030
     Dates: start: 20120627
  3. DULOXETINE. [Concomitant]
     Active Substance: DULOXETINE
     Dosage: 30 MG, DAILY
     Route: 048
     Dates: start: 20160517
  4. OMEPRAZOLE. [Concomitant]
     Active Substance: OMEPRAZOLE
     Dosage: 20 MG, DAILY
     Route: 048
     Dates: start: 20151006
  5. ZOFRAN [Concomitant]
     Active Substance: ONDANSETRON HYDROCHLORIDE
     Dosage: 4 MG, AS NEEDED
     Dates: start: 20160915
  6. METHOTREXATE SODIUM. [Suspect]
     Active Substance: METHOTREXATE SODIUM
     Indication: CROHN^S DISEASE
     Dosage: UNK
     Dates: start: 201610
  7. ACETAMINOPHEN. [Concomitant]
     Active Substance: ACETAMINOPHEN
     Dosage: 500 MG, AS NEEDED (EVERY 6 HOURS)
     Route: 048
     Dates: start: 20160314
  8. DOXEPIN [Concomitant]
     Active Substance: DOXEPIN
     Dosage: 10 MG, AS NEEDED
     Route: 048
  9. GABAPENTIN. [Concomitant]
     Active Substance: GABAPENTIN
     Dosage: 600 MG, AS NEEDED (TWICE DAILY)
     Dates: start: 20150715
  10. KLONOPIN [Concomitant]
     Active Substance: CLONAZEPAM
     Dosage: 0.25 MG, AS NEEDED (1/2 TABLET, DAILY)
     Route: 048
     Dates: start: 20151007
  11. METHOTREXATE SODIUM. [Suspect]
     Active Substance: METHOTREXATE SODIUM
     Dosage: 15 MG, WEEKLY
     Route: 030
     Dates: start: 20161129
  12. REMICADE [Suspect]
     Active Substance: INFLIXIMAB
     Indication: DIARRHOEA
  13. LOPERAMIDE [Concomitant]
     Active Substance: LOPERAMIDE
     Indication: DIARRHOEA
     Dosage: 2 MG, AS NEEDED (BID)
     Route: 048
     Dates: start: 20121204, end: 20130307
  14. INFLUENZA VACCINE [Concomitant]
     Active Substance: INFLUENZA VIRUS VACCINE
     Indication: IMMUNISATION
     Dosage: 0.5 ML, UNK
     Route: 030
     Dates: start: 20151007
  15. REMICADE [Suspect]
     Active Substance: INFLIXIMAB
     Indication: DRUG THERAPY
     Dosage: 800 MG, CYCLIC (EVERY 6 WEEKS)
     Route: 042
     Dates: start: 20160314
  16. REMICADE [Suspect]
     Active Substance: INFLIXIMAB
     Indication: INTESTINAL OBSTRUCTION
     Dosage: 400 MG, CYCLIC (EVERY 6-8 WEEKS)
     Dates: start: 20110507
  17. FOLIC ACID. [Concomitant]
     Active Substance: FOLIC ACID
     Dosage: 800 UG, DAILY
     Route: 048
     Dates: start: 20170103
  18. LORATADINE. [Concomitant]
     Active Substance: LORATADINE
     Dosage: 10 MG, DAILY (AS DIRECTED)
     Route: 048
     Dates: start: 20160314
  19. METHOTREXATE SODIUM. [Suspect]
     Active Substance: METHOTREXATE SODIUM
     Indication: DRUG THERAPY
     Dosage: 0.6 ML, WEEKLY (AS DIRECTED)
     Dates: start: 20161227
  20. FOLIC ACID. [Concomitant]
     Active Substance: FOLIC ACID
     Dosage: 800 UG, DAILY (EACH AM)
  21. VITAMIN D2 [Concomitant]
     Active Substance: ERGOCALCIFEROL
     Dosage: 50000 IU, WEEKLY  (TWICE EACH WEEK)
     Dates: start: 20160316
  22. IRON [Concomitant]
     Active Substance: IRON
     Dosage: 160 MG, 2X/DAY
     Route: 048
     Dates: start: 20120905, end: 20130610
  23. HEPATITIS B VACCINE [Concomitant]
     Active Substance: HEPATITIS B VIRUS VACCINE
     Indication: IMMUNISATION
     Dosage: UNK
     Dates: start: 20120601
  24. REMICADE [Suspect]
     Active Substance: INFLIXIMAB
     Indication: ABDOMINAL PAIN
     Dosage: 10 MG/KG, UNK
  25. REMICADE [Suspect]
     Active Substance: INFLIXIMAB
     Indication: NAUSEA
     Dosage: 800 MG, CYCLIC (EVERY 6 WEEKS)
     Dates: start: 20140811
  26. REMICADE [Suspect]
     Active Substance: INFLIXIMAB
     Indication: FATIGUE
  27. REMICADE [Suspect]
     Active Substance: INFLIXIMAB
     Indication: WEIGHT DECREASED

REACTIONS (12)
  - Asthenia [Unknown]
  - Frequent bowel movements [Unknown]
  - Viral infection [Unknown]
  - Rhinitis allergic [Unknown]
  - Weight decreased [Unknown]
  - Abdominal pain [Unknown]
  - Haemorrhage [Unknown]
  - Mucous stools [Unknown]
  - Periodontal disease [Unknown]
  - Decreased appetite [Unknown]
  - Liver function test increased [Recovered/Resolved]
  - Pyrexia [Unknown]
